FAERS Safety Report 13452944 (Version 3)
Quarter: 2018Q3

REPORT INFORMATION
  Report Type: Report from Study
  Country: US (occurrence: US)
  Receive Date: 20170418
  Receipt Date: 20180727
  Transmission Date: 20181010
  Serious: No
  Sender: FDA-Public Use
  Company Number: PHHY2017US057254

PATIENT
  Age: 39 Year
  Sex: Female

DRUGS (3)
  1. SOLU?MEDROL [Concomitant]
     Active Substance: METHYLPREDNISOLONE SODIUM SUCCINATE
     Indication: CENTRAL NERVOUS SYSTEM LESION
     Dosage: UNK
     Route: 042
     Dates: start: 20151120, end: 20151123
  2. PROVIGIL [Concomitant]
     Active Substance: MODAFINIL
     Indication: FATIGUE
     Dosage: 100 MG, UNK
     Route: 065
     Dates: start: 20170130
  3. GILENYA [Suspect]
     Active Substance: FINGOLIMOD HYDROCHLORIDE
     Indication: MULTIPLE SCLEROSIS
     Dosage: UNK, QD
     Route: 048

REACTIONS (5)
  - White blood cell count decreased [Unknown]
  - Anxiety [Recovered/Resolved]
  - Herpes zoster [Recovered/Resolved]
  - Pain in extremity [Recovered/Resolved]
  - Muscle spasticity [Unknown]

NARRATIVE: CASE EVENT DATE: 20160406
